FAERS Safety Report 14586845 (Version 1)
Quarter: 2018Q1

REPORT INFORMATION
  Report Type: Spontaneous
  Country: US (occurrence: US)
  Receive Date: 20180301
  Receipt Date: 20180301
  Transmission Date: 20180509
  Serious: No
  Sender: FDA-Public Use
  Company Number: US-LEXICON PHARMACEUTICALS, INC-18-1606-00148

PATIENT
  Sex: Male

DRUGS (18)
  1. TELOTRISTAT ETHYL [Suspect]
     Active Substance: TELOTRISTAT ETHYL
     Indication: CARCINOID SYNDROME
     Route: 048
     Dates: start: 20171005
  2. INDOMETHACIN. [Concomitant]
     Active Substance: INDOMETHACIN
  3. ROPINIROLE. [Concomitant]
     Active Substance: ROPINIROLE
  4. VOLTAREN [Concomitant]
     Active Substance: DICLOFENAC SODIUM
  5. DICYCLOMINE [Concomitant]
     Active Substance: DICYCLOMINE HYDROCHLORIDE
  6. MAGNESIUM [Concomitant]
     Active Substance: MAGNESIUM
  7. OPIUM. [Concomitant]
     Active Substance: OPIUM
  8. ALLOPURINOL. [Concomitant]
     Active Substance: ALLOPURINOL
  9. SANDOSTATIN [Concomitant]
     Active Substance: OCTREOTIDE ACETATE
  10. SERTRALINE [Concomitant]
     Active Substance: SERTRALINE HYDROCHLORIDE
  11. OMEPRAZOLE. [Concomitant]
     Active Substance: OMEPRAZOLE
  12. NIACIN. [Concomitant]
     Active Substance: NIACIN
  13. KLOR-CON [Concomitant]
     Active Substance: POTASSIUM CHLORIDE
  14. PREDNISOLONE. [Concomitant]
     Active Substance: PREDNISOLONE
  15. AMLODIPINE [Concomitant]
     Active Substance: AMLODIPINE BESYLATE
  16. PAROXETINE. [Concomitant]
     Active Substance: PAROXETINE
  17. ASPIR-LOW [Concomitant]
     Active Substance: ASPIRIN
  18. VITAMIN B12 [Concomitant]
     Active Substance: CYANOCOBALAMIN

REACTIONS (2)
  - Drug ineffective [Unknown]
  - Accident [Unknown]
